FAERS Safety Report 8532699 (Version 2)
Quarter: 2013Q3

REPORT INFORMATION
  Report Type: Spontaneous
  Country: US (occurrence: US)
  Receive Date: 20120426
  Receipt Date: 20130830
  Transmission Date: 20140515
  Serious: Yes (Hospitalization)
  Sender: FDA-Public Use
  Company Number: US-ABBOTT-12P-167-0926949-00

PATIENT
  Age: 46 Year
  Sex: Female
  Weight: 71.44 kg

DRUGS (9)
  1. NORVIR TABLETS [Suspect]
     Indication: HIV INFECTION
     Dates: start: 199609
  2. CICLETANINE HYDROCHLORIDE [Suspect]
     Indication: PULMONARY ARTERIAL HYPERTENSION
     Route: 048
     Dates: start: 20100503
  3. PLACEBO [Suspect]
     Indication: PULMONARY ARTERIAL HYPERTENSION
     Route: 048
  4. INVIRASE [Suspect]
     Indication: HIV INFECTION
     Dates: start: 199609
  5. LETAIRIS [Concomitant]
     Indication: PULMONARY HYPERTENSION
     Dates: start: 20070731
  6. VITAMIN C [Concomitant]
     Indication: SUPPLEMENTATION THERAPY
     Dates: start: 200901
  7. SEROQUEL [Concomitant]
     Indication: DEPRESSION
     Dates: start: 199609
  8. MULTIVITAMINS [Concomitant]
     Indication: SUPPLEMENTATION THERAPY
     Dates: start: 200901
  9. KCL [Concomitant]
     Indication: HYPOKALAEMIA
     Dates: start: 200708

REACTIONS (1)
  - Hypokalaemia [Recovered/Resolved]
